FAERS Safety Report 20290711 (Version 1)
Quarter: 2022Q1

REPORT INFORMATION
  Report Type: Spontaneous
  Country: US (occurrence: US)
  Receive Date: 20220104
  Receipt Date: 20220104
  Transmission Date: 20220424
  Serious: No
  Sender: FDA-Public Use
  Company Number: US-GALDERMA-US2021019876

PATIENT

DRUGS (3)
  1. DIFFERIN GEL [Suspect]
     Active Substance: ADAPALENE
     Indication: Acne cystic
     Dosage: 1 DOSAGE FORM
     Route: 061
  2. DIFFERIN OIL CONTROL MOISTURIZER SPF 30 [Suspect]
     Active Substance: AVOBENZONE\OCTISALATE\OCTOCRYLENE
     Indication: Acne cystic
     Dosage: 1 DOSAGE FORM
     Route: 061
  3. COSMETICS [Suspect]
     Active Substance: COSMETICS
     Indication: Acne cystic
     Dosage: 1 DOSAGE FORM
     Route: 061

REACTIONS (4)
  - Acne cystic [Unknown]
  - Condition aggravated [Unknown]
  - Drug ineffective for unapproved indication [Recovered/Resolved]
  - Product use in unapproved indication [Recovered/Resolved]
